FAERS Safety Report 6183857-6 (Version None)
Quarter: 2009Q2

REPORT INFORMATION
  Report Type: 
  Country: None (occurrence: None)
  Receive Date: 20090508
  Receipt Date: 20090427
  Transmission Date: 20091009
  Serious: Yes (Other)
  Sender: FDA-Public Use
  Company Number: US-PFIZER INC-2009204465

PATIENT
  Age: 44 Year
  Sex: Male

DRUGS (1)
  1. TESTOSTERONE CYPIONATE [Suspect]
     Route: 030

REACTIONS (2)
  - ACUTE MYOCARDIAL INFARCTION [None]
  - POLYCYTHAEMIA [None]
